FAERS Safety Report 6469326-4 (Version None)
Quarter: 2009Q4

REPORT INFORMATION
  Report Type: 
  Country: None (occurrence: None)
  Receive Date: 20091203
  Receipt Date: 20091120
  Transmission Date: 20100525
  Serious: Yes (Other)
  Sender: FDA-Public Use
  Company Number: US-SANOFI-AVENTIS-2009SA004196

PATIENT
  Age: 67 Year
  Sex: Female

DRUGS (10)
  1. MULTAQ [Suspect]
     Indication: ATRIAL FIBRILLATION
     Route: 048
     Dates: start: 20091111
  2. COUMADIN [Suspect]
     Indication: ATRIAL FIBRILLATION
     Route: 048
     Dates: end: 20091101
  3. COUMADIN [Suspect]
     Route: 048
     Dates: start: 20091101, end: 20091119
  4. COUMADIN [Suspect]
     Route: 048
     Dates: start: 20091123
  5. DIFLUCAN [Suspect]
     Indication: ANTIFUNGAL TREATMENT
     Route: 065
     Dates: start: 20091101, end: 20091101
  6. DIGOXIN [Concomitant]
     Route: 065
  7. DIGOXIN [Concomitant]
     Route: 065
  8. DIGOXIN [Concomitant]
     Route: 065
  9. ALL OTHER THERAPEUTIC PRODUCTS [Concomitant]
  10. RYTHMOL [Concomitant]
     Route: 065

REACTIONS (2)
  - DRUG INTERACTION [None]
  - INTERNATIONAL NORMALISED RATIO INCREASED [None]
